FAERS Safety Report 6554907-X (Version None)
Quarter: 2010Q1

REPORT INFORMATION
  Report Type: 
  Country: None (occurrence: None)
  Receive Date: 20100126
  Receipt Date: 20100113
  Transmission Date: 20100710
  Serious: Yes (Other)
  Sender: FDA-Public Use
  Company Number: SPV1-2010-00112

PATIENT
  Age: 44 Year
  Sex: Female

DRUGS (11)
  1. FOSRENOL [Suspect]
     Indication: HYPERPHOSPHATAEMIA
     Dosage: 750 MG, 3X/DAY:TID, ORAL
     Route: 048
     Dates: start: 20080323, end: 20080423
  2. SEVELAMER (SEVELAMER) [Concomitant]
  3. ALFACALCIDOL (ALFACALCIDOL) [Concomitant]
  4. IRBESARTAN [Concomitant]
  5. CITALOPRAM HYDROBROMIDE [Concomitant]
  6. QUININE SULPHATE (QUININE SULFATE) [Concomitant]
  7. BISOPROLOL FUMARATE [Concomitant]
  8. LEVEMIR [Concomitant]
  9. NOVOLOG [Concomitant]
  10. LANSOPRAZOLE [Concomitant]
  11. ASPIRIN [Concomitant]

REACTIONS (7)
  - ALANINE AMINOTRANSFERASE INCREASED [None]
  - BLOOD ALKALINE PHOSPHATASE INCREASED [None]
  - BLOOD BILIRUBIN INCREASED [None]
  - GAMMA-GLUTAMYLTRANSFERASE INCREASED [None]
  - JAUNDICE [None]
  - LIVER INJURY [None]
  - PRURITUS [None]
